FAERS Safety Report 13111062 (Version 1)
Quarter: 2017Q1

REPORT INFORMATION
  Report Type: Report from Study
  Country: US (occurrence: US)
  Receive Date: 20170112
  Receipt Date: 20170112
  Transmission Date: 20170428
  Serious: Yes (Hospitalization)
  Sender: FDA-Public Use
  Company Number: US-RECRO GAINESVILLE LLC-REPH-2017-000001

PATIENT

DRUGS (2)
  1. VERAPAMIL HYDROCHLORIDE SUSTAINED RELEASE [Suspect]
     Active Substance: VERAPAMIL HYDROCHLORIDE
     Indication: HYPERTENSION
     Dosage: 240 MG/D
  2. HYDROCHLOROTHIAZIDE. [Concomitant]
     Active Substance: HYDROCHLOROTHIAZIDE
     Indication: HYPERTENSION
     Dosage: 50 MG, QD

REACTIONS (11)
  - Intentional overdose [Unknown]
  - Alcohol poisoning [Unknown]
  - Ventricular extrasystoles [Unknown]
  - Depressed level of consciousness [Recovering/Resolving]
  - Overdose [Recovering/Resolving]
  - Alcohol withdrawal syndrome [Unknown]
  - Tobacco withdrawal symptoms [Unknown]
  - Suicide attempt [Unknown]
  - Nodal rhythm [Unknown]
  - Blood pressure systolic decreased [Unknown]
  - Electrolyte imbalance [Unknown]
